FAERS Safety Report 9101218 (Version 1)
Quarter: 2013Q1

REPORT INFORMATION
  Report Type: Spontaneous
  Country: US (occurrence: US)
  Receive Date: 20130218
  Receipt Date: 20130218
  Transmission Date: 20140127
  Serious: No
  Sender: FDA-Public Use
  Company Number: US-BAYER-2013-019125

PATIENT
  Age: 59 Year
  Sex: Female

DRUGS (6)
  1. BETASERON [Suspect]
     Indication: MULTIPLE SCLEROSIS
     Dosage: 0.25 MG, QOD
     Route: 058
  2. CARDIZEM [Concomitant]
     Dosage: 180 MG, QD
  3. SYNTHROID [Concomitant]
     Dosage: 100 ?G, UNK
  4. COZAAR [Concomitant]
     Dosage: 100 MG, UNK
  5. VITAMIN D [Concomitant]
     Dosage: 1000 IU, UNK
  6. CENTRUM [Concomitant]

REACTIONS (1)
  - Hepatic enzyme increased [Unknown]
